FAERS Safety Report 10260308 (Version 1)
Quarter: 2014Q2

REPORT INFORMATION
  Report Type: Spontaneous
  Country: US (occurrence: US)
  Receive Date: 20140625
  Receipt Date: 20140625
  Transmission Date: 20141212
  Serious: No
  Sender: FDA-Public Use
  Company Number: US-SA-2014SA062461

PATIENT
  Age: 68 Year
  Sex: Male

DRUGS (16)
  1. AUBAGIO [Suspect]
     Indication: MULTIPLE SCLEROSIS
     Route: 048
  2. VITAMIN D [Concomitant]
  3. COQ10 [Concomitant]
  4. KRILL OIL [Concomitant]
  5. MULTIVITAMINS [Concomitant]
  6. BACLOFEN [Concomitant]
     Route: 061
  7. CYCLOBENZAPRINE [Concomitant]
     Route: 061
  8. KETAMINE [Concomitant]
     Route: 061
  9. GABAPENTIN [Concomitant]
     Route: 061
  10. LIDOCAINE [Concomitant]
  11. TOLTERODINE L-TARTRATE [Concomitant]
     Dosage: LONG ACTING
  12. LEVOTHYROXINE [Concomitant]
  13. SIMVASTATIN [Concomitant]
  14. MECLIZINE [Concomitant]
  15. POLYETHYLENE GLYCOL [Concomitant]
  16. TRAMADOL [Concomitant]

REACTIONS (2)
  - Asthenia [Unknown]
  - Fatigue [Unknown]
